FAERS Safety Report 8955419 (Version 8)
Quarter: 2019Q2

REPORT INFORMATION
  Report Type: Spontaneous
  Country: US (occurrence: US)
  Receive Date: 20121207
  Receipt Date: 20190610
  Transmission Date: 20190711
  Serious: No
  Sender: FDA-Public Use
  Company Number: US-VERTEX PHARMACEUTICALS INC.-2012-025536

PATIENT
  Age: 26 Year
  Sex: Female
  Weight: 72 kg

DRUGS (18)
  1. KALYDECO [Suspect]
     Active Substance: IVACAFTOR
     Dosage: UNK
     Route: 048
     Dates: start: 20190326
  2. MIRALAX [Concomitant]
     Active Substance: POLYETHYLENE GLYCOL 3350
     Dosage: 7 G, QD, PRN
  3. HUMALOG [Concomitant]
     Active Substance: INSULIN LISPRO
  4. AZITHROMYCIN ANHYDROUS. [Concomitant]
     Active Substance: AZITHROMYCIN ANHYDROUS
     Dosage: 500 MG, EVERY MONDAY, WEDNESDAY, FRIDAY
  5. HYPERTONIC SALINE SOLUTION [Concomitant]
     Active Substance: SODIUM CHLORIDE
     Dosage: 7 %, BID
  6. SODIUM CHLORIDE. [Concomitant]
     Active Substance: SODIUM CHLORIDE
     Dosage: UNK
  7. PROAIR HFA [Concomitant]
     Active Substance: ALBUTEROL SULFATE
     Dosage: 90 ?G, 2 PUFFS, INHALED 4 TIMES PER DAY PRN
  8. ZENPEP [Concomitant]
     Active Substance: PANCRELIPASE AMYLASE\PANCRELIPASE LIPASE\PANCRELIPASE PROTEASE
     Dosage: 20000 UNITS, 3-4 CAPSULES
  9. PULMOZYME [Concomitant]
     Active Substance: DORNASE ALFA
     Dosage: 2.5 MG, QD
  10. KALYDECO [Suspect]
     Active Substance: IVACAFTOR
     Indication: CYSTIC FIBROSIS
     Dosage: 150 MG, BID
     Route: 048
     Dates: start: 201207, end: 20121104
  11. ALBUTEROL. [Concomitant]
     Active Substance: ALBUTEROL
     Dosage: 2.5 MG, NEBULIZED 1 6HR PRN
  12. COLISTIN [Concomitant]
     Active Substance: COLISTIN
     Dosage: UNK
  13. KALYDECO [Suspect]
     Active Substance: IVACAFTOR
     Dosage: 150 MG, BID
     Route: 048
     Dates: start: 20121105, end: 201302
  14. TOBI [Concomitant]
     Active Substance: TOBRAMYCIN
     Dosage: 300 MG, 28 DAYS OFF AND 28 DAYS ON CYCLES
  15. VITAMIN D3 [Concomitant]
     Active Substance: CHOLECALCIFEROL
     Dosage: 1 UNK, QD
  16. CAYSTON [Concomitant]
     Active Substance: AZTREONAM
     Dosage: UNK
  17. FLONASE [Concomitant]
     Active Substance: FLUTICASONE PROPIONATE
     Dosage: 2 SPRAYS EACH NOSTRIL, QD
  18. ADVAIR HFA [Concomitant]
     Active Substance: FLUTICASONE PROPIONATE\SALMETEROL XINAFOATE
     Dosage: 250/50 MCG 1 PUFF, BID

REACTIONS (13)
  - Sluggishness [Recovered/Resolved]
  - Somnolence [Unknown]
  - Nasal dryness [Unknown]
  - Spirometry abnormal [Recovered/Resolved]
  - Chest discomfort [Unknown]
  - Lethargy [Recovered/Resolved]
  - Cough [Unknown]
  - Blood glucose increased [Unknown]
  - Wheezing [Unknown]
  - Weight increased [Recovered/Resolved]
  - Fatigue [Recovered/Resolved]
  - Headache [Unknown]
  - Musculoskeletal discomfort [Unknown]

NARRATIVE: CASE EVENT DATE: 201210
